FAERS Safety Report 4632785-3 (Version None)
Quarter: 2005Q2

REPORT INFORMATION
  Report Type: 
  Country: None (occurrence: None)
  Receive Date: 20050412
  Receipt Date: 20050405
  Transmission Date: 20051028
  Serious: Yes (Other)
  Sender: FDA-Public Use
  Company Number: PHRM2005DZ01255

PATIENT
  Age: 45 Year
  Sex: Male

DRUGS (1)
  1. FORADIL [Suspect]
     Route: 048

REACTIONS (4)
  - ANGIONEUROTIC OEDEMA [None]
  - COUGH [None]
  - DYSPHONIA [None]
  - ORAL PRURITUS [None]
